FAERS Safety Report 8500143-7 (Version None)
Quarter: 2012Q3

REPORT INFORMATION
  Report Type: 
  Country: None (occurrence: None)
  Receive Date: 20120710
  Receipt Date: 20120625
  Transmission Date: 20120928
  Serious: Yes (Death, Hospitalization)
  Sender: FDA-Public Use
  Company Number: FR-PFIZER INC-2012157527

PATIENT
  Age: 69 Year
  Sex: Male

DRUGS (14)
  1. PACLITAXEL [Suspect]
     Indication: CHEMOTHERAPY
     Dosage: 380 MG, CYCLIC, EVERY 28 DAYS
     Route: 042
     Dates: start: 20120227, end: 20120227
  2. NEULASTA [Concomitant]
     Indication: APLASIA
     Dosage: 6 MG, CYCLIC, EVERY 28 DAYS
     Route: 058
     Dates: start: 20120228, end: 20120228
  3. LASIX [Concomitant]
     Indication: ASCITES
     Dosage: 40 MG, DAILY
     Route: 048
  4. METHYLPREDNISOLONE [Concomitant]
     Dosage: 120 MG, CYCLIC, EVERY 28 DAYS
     Route: 042
     Dates: start: 20120227, end: 20120227
  5. ZANTAC [Suspect]
     Dosage: 50 MG, CYCLIC, EVERY 28 DAYS
     Route: 042
     Dates: start: 20120227, end: 20120227
  6. ALDACTONE [Concomitant]
     Indication: ASCITES
     Dosage: 150 MG, 1X/DAY
     Route: 048
  7. ALIMTA [Concomitant]
     Dosage: 630 MG, UNK
     Route: 042
     Dates: start: 20120417, end: 20120417
  8. ASPEGIC 1000 [Concomitant]
     Dosage: 250 MG, DAILY
  9. POLARAMINE [Concomitant]
     Dosage: 5 MG, CYCLIC, EVERY 28 DAYS
     Route: 042
     Dates: start: 20120227, end: 20120227
  10. CHLORAMINOPHENE [Concomitant]
     Dosage: UNK
     Dates: end: 20120201
  11. ATORVASTATIN [Suspect]
     Dosage: 40 MG, DAILY
     Route: 048
     Dates: end: 20120328
  12. CARBOPLATIN [Suspect]
     Indication: CHEMOTHERAPY
     Dosage: 533 MG, CYCLIC, EVERY 28 DAYS
     Route: 042
     Dates: start: 20120227, end: 20120227
  13. ONDANSETRON HCL [Concomitant]
     Dosage: 4 MG, CYCLIC, EVERY 28 DAYS
     Route: 042
     Dates: start: 20120227, end: 20120227
  14. ACETAMINOPHEN [Concomitant]
     Indication: PAIN
     Dosage: 1 G, FOUR TABLETS DAILY AS NEEDED

REACTIONS (4)
  - HEPATITIS CHOLESTATIC [None]
  - FEBRILE BONE MARROW APLASIA [None]
  - ESCHERICHIA BACTERAEMIA [None]
  - SEPTIC SHOCK [None]
